FAERS Safety Report 14661838 (Version 1)
Quarter: 2018Q1

REPORT INFORMATION
  Report Type: Spontaneous
  Country: US (occurrence: US)
  Receive Date: 20180320
  Receipt Date: 20180320
  Transmission Date: 20180509
  Serious: Yes (Hospitalization)
  Sender: FDA-Public Use
  Company Number: US-BEH-2018088838

PATIENT
  Age: 74 Year
  Sex: Female
  Weight: 79.37 kg

DRUGS (36)
  1. VYTORIN [Concomitant]
     Active Substance: EZETIMIBE\SIMVASTATIN
  2. SYMBICORT [Concomitant]
     Active Substance: BUDESONIDE\FORMOTEROL FUMARATE DIHYDRATE
  3. PROTONIX [Concomitant]
     Active Substance: PANTOPRAZOLE SODIUM
  4. PLAVIX [Concomitant]
     Active Substance: CLOPIDOGREL BISULFATE
  5. FISH OIL [Concomitant]
     Active Substance: FISH OIL
  6. LANTUS [Concomitant]
     Active Substance: INSULIN GLARGINE
  7. ASPIRIN. [Concomitant]
     Active Substance: ASPIRIN
  8. PREDNISONE. [Concomitant]
     Active Substance: PREDNISONE
  9. ACETAMINOPHEN. [Concomitant]
     Active Substance: ACETAMINOPHEN
  10. HIZENTRA [Suspect]
     Active Substance: HUMAN IMMUNOGLOBULIN G
     Indication: IMMUNODEFICIENCY COMMON VARIABLE
     Dosage: 12 G, UNK
     Route: 058
     Dates: start: 20121226
  11. AVELOX [Concomitant]
     Active Substance: MOXIFLOXACIN HYDROCHLORIDE
  12. HIZENTRA [Suspect]
     Active Substance: HUMAN IMMUNOGLOBULIN G
     Dosage: UNK
     Route: 058
  13. PROAIR HFA [Concomitant]
     Active Substance: ALBUTEROL SULFATE
  14. NITROGLYCERIN. [Concomitant]
     Active Substance: NITROGLYCERIN
  15. LIDODERM [Concomitant]
     Active Substance: LIDOCAINE
  16. DUONEB [Concomitant]
     Active Substance: ALBUTEROL SULFATE\IPRATROPIUM BROMIDE
  17. DENAVIR [Concomitant]
     Active Substance: PENCICLOVIR
  18. ALLEGRA [Concomitant]
     Active Substance: FEXOFENADINE HYDROCHLORIDE
  19. VITAMIN D                          /00107901/ [Concomitant]
     Active Substance: ERGOCALCIFEROL
  20. NOVOLOG [Concomitant]
     Active Substance: INSULIN ASPART
  21. COMBIVENT [Concomitant]
     Active Substance: ALBUTEROL SULFATE\IPRATROPIUM BROMIDE
  22. PROBIOTIC                          /06395501/ [Concomitant]
     Active Substance: BIFIDOBACTERIUM ANIMALIS LACTIS
  23. PROBIOTIC                          /06395501/ [Concomitant]
     Active Substance: BIFIDOBACTERIUM ANIMALIS LACTIS
  24. ALLOPURINOL. [Concomitant]
     Active Substance: ALLOPURINOL
  25. LASIX [Concomitant]
     Active Substance: FUROSEMIDE
  26. POTASSIUM [Concomitant]
     Active Substance: POTASSIUM
  27. DILTIAZEM. [Concomitant]
     Active Substance: DILTIAZEM
  28. HYDRALAZINE [Concomitant]
     Active Substance: HYDRALAZINE HYDROCHLORIDE
  29. EPINEPHRINE. [Concomitant]
     Active Substance: EPINEPHRINE
  30. DIPHENHYDRAMINE. [Concomitant]
     Active Substance: DIPHENHYDRAMINE
  31. MULTIVITAMINS [Concomitant]
     Active Substance: VITAMINS
  32. ZYFLO [Concomitant]
     Active Substance: ZILEUTON
  33. ZITHROMYCIN [Concomitant]
     Active Substance: AZITHROMYCIN ANHYDROUS
  34. LIDOCAINE. [Concomitant]
     Active Substance: LIDOCAINE
  35. DIOVAN [Concomitant]
     Active Substance: VALSARTAN
  36. ZYLOPRIM [Concomitant]
     Active Substance: ALLOPURINOL

REACTIONS (1)
  - Cardiac failure [Unknown]

NARRATIVE: CASE EVENT DATE: 20180312
